FAERS Safety Report 17465225 (Version 6)
Quarter: 2020Q2

REPORT INFORMATION
  Report Type: Report from Study
  Country: None (occurrence: CH)
  Receive Date: 20200226
  Receipt Date: 20200511
  Transmission Date: 20200713
  Serious: Yes (Hospitalization)
  Sender: FDA-Public Use
  Company Number: CH-ABBVIE-20K-151-3289020-00

PATIENT
  Age: 77 Year
  Sex: Female

DRUGS (3)
  1. DUODOPA [Suspect]
     Active Substance: CARBIDOPA\LEVODOPA
     Dosage: MORNING DOSE 6.5ML, CONTINUOUS RATE-DAY 2ML/H, EXTRA DOSE 0.8ML?16H THERAPY
     Route: 050
     Dates: start: 20200218, end: 20200219
  2. DUODOPA [Suspect]
     Active Substance: CARBIDOPA\LEVODOPA
     Indication: PARKINSON^S DISEASE
     Route: 050
     Dates: start: 20200210, end: 20200218
  3. DUODOPA [Suspect]
     Active Substance: CARBIDOPA\LEVODOPA
     Dosage: MORNING DOSE 6ML, CONTINUOUS RATE-DAY 1.9ML/H, EXTRA DOSE 0.8ML?16H THERAPY
     Route: 050
     Dates: start: 20200219

REACTIONS (13)
  - Stoma site hypergranulation [Not Recovered/Not Resolved]
  - Medical device site injury [Recovered/Resolved]
  - Device placement issue [Unknown]
  - Sluggishness [Unknown]
  - Inflammation [Recovered/Resolved]
  - Stoma site hypergranulation [Recovered/Resolved]
  - Device alarm issue [Recovered/Resolved]
  - Stoma site inflammation [Recovered/Resolved]
  - Stoma site discharge [Recovered/Resolved]
  - Mobility decreased [Recovered/Resolved]
  - Device kink [Recovered/Resolved]
  - C-reactive protein increased [Recovered/Resolved]
  - Pain [Recovered/Resolved]

NARRATIVE: CASE EVENT DATE: 2020
